FAERS Safety Report 6435620-6 (Version None)
Quarter: 2009Q4

REPORT INFORMATION
  Report Type: 
  Country: None (occurrence: None)
  Receive Date: 20091111
  Receipt Date: 20091103
  Transmission Date: 20100525
  Serious: Yes (Other)
  Sender: FDA-Public Use
  Company Number: TR-JNJFOC-20091008560

PATIENT
  Age: 17 Year
  Sex: Male

DRUGS (1)
  1. CONCERTA [Suspect]
     Indication: DRUG ABUSE
     Dosage: TOTAL TREATMENT FOR 1.5 YEARS
     Route: 048

REACTIONS (2)
  - DRUG ABUSE [None]
  - DRUG DIVERSION [None]
